FAERS Safety Report 22398565 (Version 2)
Quarter: 2023Q2

REPORT INFORMATION
  Report Type: Report from Study
  Country: AE (occurrence: None)
  Receive Date: 20230602
  Receipt Date: 20230615
  Transmission Date: 20230722
  Serious: Yes (Hospitalization)
  Sender: FDA-Public Use
  Company Number: 2023A124929

PATIENT
  Age: 26 Year
  Sex: Male
  Weight: 72.2 kg

DRUGS (5)
  1. CILGAVIMAB\TIXAGEVIMAB [Suspect]
     Active Substance: CILGAVIMAB\TIXAGEVIMAB
     Indication: COVID-19 treatment
     Dosage: 3 ML ONCE/SINGLE ADMINISTRATION
     Route: 030
     Dates: start: 20221028
  2. SARS-COV-2 VACCINE (VERO CELL), INACTIVATED [Concomitant]
     Indication: COVID-19 prophylaxis
     Dosage: ONCE/SINGLE ADMINISTRATION
     Dates: start: 20210619, end: 20210619
  3. SARS-COV-2 VACCINE (VERO CELL), INACTIVATED [Concomitant]
     Indication: COVID-19 prophylaxis
     Dosage: ONCE/SINGLE ADMINISTRATION
     Dates: start: 20211104, end: 20211104
  4. SARS-COV-2 VACCINE (VERO CELL), INACTIVATED [Concomitant]
     Indication: COVID-19 prophylaxis
     Dosage: ONCE/SINGLE ADMINISTRATION
     Dates: start: 20211228, end: 20211228
  5. PFIZER-BIONTECH COVID-19 VACCINE [Concomitant]
     Active Substance: TOZINAMERAN
     Indication: COVID-19 prophylaxis
     Dosage: ONCE/SINGLE ADMINISTRATION
     Dates: start: 20220919, end: 20220919

REACTIONS (1)
  - Kidney transplant rejection [Recovered/Resolved]

NARRATIVE: CASE EVENT DATE: 20230502
